FAERS Safety Report 8380233-2 (Version None)
Quarter: 2012Q2

REPORT INFORMATION
  Report Type: 
  Country: None (occurrence: None)
  Receive Date: 20120523
  Receipt Date: 20120522
  Transmission Date: 20120825
  Serious: Yes (Death, Hospitalization, Other)
  Sender: FDA-Public Use
  Company Number: PHHY2011CA82379

PATIENT
  Sex: Female

DRUGS (2)
  1. SANDOSTATIN LAR [Suspect]
     Indication: MYELODYSPLASTIC SYNDROME
  2. SANDOSTATIN LAR [Suspect]
     Indication: GASTROINTESTINAL ANGIODYSPLASIA
     Dosage: 30 MG, QMO
     Route: 030
     Dates: start: 20100512, end: 20120423

REACTIONS (11)
  - CHEST PAIN [None]
  - HAEMATURIA [None]
  - PLATELET COUNT DECREASED [None]
  - DIARRHOEA HAEMORRHAGIC [None]
  - HAEMORRHAGE [None]
  - PULMONARY OEDEMA [None]
  - ANAEMIA [None]
  - MYOCARDIAL INFARCTION [None]
  - DYSPNOEA [None]
  - FALL [None]
  - DEATH [None]
